FAERS Safety Report 25446120 (Version 2)
Quarter: 2025Q2

REPORT INFORMATION
  Report Type: Spontaneous
  Country: US (occurrence: US)
  Receive Date: 20250617
  Receipt Date: 20250618
  Transmission Date: 20250717
  Serious: Yes (Death)
  Sender: PFIZER
  Company Number: US-PFIZER INC-202500103517

PATIENT
  Age: 59 Year
  Sex: Female

DRUGS (1)
  1. TIVDAK [Suspect]
     Active Substance: TISOTUMAB VEDOTIN-TFTV
     Indication: Cervix carcinoma recurrent
     Dosage: 48 MG, EVERY 3 WEEKS

REACTIONS (1)
  - Death [Fatal]
